FAERS Safety Report 11238165 (Version 1)
Quarter: 2015Q3

REPORT INFORMATION
  Report Type: Report from Study
  Country: FR (occurrence: FR)
  Receive Date: 20150703
  Receipt Date: 20150703
  Transmission Date: 20151125
  Serious: Yes (Hospitalization, Other)
  Sender: FDA-Public Use
  Company Number: FR-GLAXOSMITHKLINE-FR2015GSK095382

PATIENT
  Age: 51 Year
  Sex: Male

DRUGS (7)
  1. OMEGA-3-ACID ETHYL ESTERS. [Suspect]
     Active Substance: OMEGA-3-ACID ETHYL ESTERS
     Indication: ISCHAEMIC HEART DISEASE PROPHYLAXIS
     Dosage: UNK
     Dates: start: 20081113, end: 20150123
  2. ADANCOR [Concomitant]
     Active Substance: NICORANDIL
  3. KARDEGIC [Concomitant]
     Active Substance: ASPIRIN LYSINE
  4. TAHOR [Concomitant]
     Active Substance: ATORVASTATIN CALCIUM
  5. COVERSYL [Concomitant]
     Active Substance: PERINDOPRIL
  6. PLAVIX [Concomitant]
     Active Substance: CLOPIDOGREL BISULFATE
  7. SECTRAL [Concomitant]
     Active Substance: ACEBUTOLOL HYDROCHLORIDE

REACTIONS (1)
  - Cerebrovascular accident [Unknown]

NARRATIVE: CASE EVENT DATE: 20101031
